FAERS Safety Report 18358115 (Version 2)
Quarter: 2020Q4

REPORT INFORMATION
  Report Type: Spontaneous
  Country: CA (occurrence: CA)
  Receive Date: 20201008
  Receipt Date: 20201012
  Transmission Date: 20210114
  Serious: Yes (Other)
  Sender: FDA-Public Use
  Company Number: CA-CELLTRION INC.-2019CA021608

PATIENT

DRUGS (17)
  1. INFLECTRA [Suspect]
     Active Substance: INFLIXIMAB-DYYB
     Dosage: 300 MG, EVERY 6 WEEKS
     Route: 042
     Dates: start: 20191231
  2. INFLECTRA [Suspect]
     Active Substance: INFLIXIMAB-DYYB
     Dosage: 300 MG, EVERY 6 WEEKS
     Route: 042
     Dates: start: 20200211
  3. TRAMADOL. [Concomitant]
     Active Substance: TRAMADOL
     Dosage: UNK, AS NEEDED (2-3 TIMES PER WEEK)
     Route: 065
  4. BENADRYL [Concomitant]
     Active Substance: DIPHENHYDRAMINE HYDROCHLORIDE
     Indication: PREMEDICATION
     Dosage: UNK, AS NEEDED
     Route: 048
     Dates: start: 202004
  5. INFLECTRA [Suspect]
     Active Substance: INFLIXIMAB-DYYB
     Dosage: 300 MG, EVERY 4 WEEKS
     Route: 042
     Dates: start: 20200312
  6. INFLECTRA [Suspect]
     Active Substance: INFLIXIMAB-DYYB
     Dosage: 300 MG, EVERY 0, 2, 6 WEEKS, THEN EVERY 8 WEEKS
     Route: 042
     Dates: start: 20190627
  7. INFLECTRA [Suspect]
     Active Substance: INFLIXIMAB-DYYB
     Dosage: 300 MG, EVERY 6 WEEKS
     Route: 042
  8. INFLECTRA [Suspect]
     Active Substance: INFLIXIMAB-DYYB
     Dosage: 300 MG, EVERY 6 WEEKS
     Route: 042
     Dates: start: 20191112
  9. INFLECTRA [Suspect]
     Active Substance: INFLIXIMAB-DYYB
     Dosage: 300 MG, EVERY 0, 2, 6 WEEKS, THEN EVERY 8 WEEKS
     Route: 042
     Dates: start: 20190827
  10. INFLECTRA [Suspect]
     Active Substance: INFLIXIMAB-DYYB
     Indication: ANKYLOSING SPONDYLITIS
     Dosage: 300 MG, EVERY 0, 2, 6 WEEKS, THEN EVERY 8 WEEKS
     Route: 042
     Dates: start: 20190516, end: 20190827
  11. INFLECTRA [Suspect]
     Active Substance: INFLIXIMAB-DYYB
     Dosage: 300 MG, EVERY 6 WEEKS
     Route: 042
     Dates: start: 20191003
  12. INFLECTRA [Suspect]
     Active Substance: INFLIXIMAB-DYYB
     Dosage: 300 MG, EVERY 4 WEEKS
     Route: 042
     Dates: start: 20200924
  13. TYLENOL [Concomitant]
     Active Substance: ACETAMINOPHEN
     Indication: PREMEDICATION
     Dosage: UNK, AS NEEDED
     Route: 048
     Dates: start: 202004
  14. NAPROXEN. [Concomitant]
     Active Substance: NAPROXEN
     Dosage: UNK, AS NEEDED
     Route: 065
     Dates: start: 202004
  15. INFLECTRA [Suspect]
     Active Substance: INFLIXIMAB-DYYB
     Dosage: 300 MG, EVERY 0, 2, 6 WEEKS, THEN EVERY 8 WEEKS
     Route: 042
     Dates: start: 20190528
  16. INFLECTRA [Suspect]
     Active Substance: INFLIXIMAB-DYYB
     Dosage: 300 MG, EVERY 4 WEEKS
     Route: 042
     Dates: start: 20200409
  17. LOLO [Concomitant]
     Active Substance: ETHINYL ESTRADIOL\NORETHINDRONE ACETATE
     Indication: CONTRACEPTION
     Dosage: UNK
     Route: 065

REACTIONS (25)
  - Fatigue [Unknown]
  - Productive cough [Unknown]
  - Intervertebral disc protrusion [Unknown]
  - Therapeutic response shortened [Unknown]
  - Cystitis [Not Recovered/Not Resolved]
  - Anaphylactic reaction [Unknown]
  - Asthenia [Unknown]
  - Pain [Unknown]
  - Back pain [Not Recovered/Not Resolved]
  - Inappropriate schedule of product administration [Unknown]
  - Pain in extremity [Unknown]
  - Ear infection [Unknown]
  - Musculoskeletal discomfort [Not Recovered/Not Resolved]
  - Gait disturbance [Unknown]
  - Off label use [Unknown]
  - Bronchitis bacterial [Unknown]
  - Dizziness postural [Recovering/Resolving]
  - Hepatic enzyme increased [Unknown]
  - Drug intolerance [Unknown]
  - Urticaria [Not Recovered/Not Resolved]
  - Nasopharyngitis [Unknown]
  - Urinary tract infection [Unknown]
  - Headache [Recovering/Resolving]
  - Gastritis [Unknown]
  - Abdominal discomfort [Unknown]

NARRATIVE: CASE EVENT DATE: 20190826
